FAERS Safety Report 24065635 (Version 1)
Quarter: 2024Q3

REPORT INFORMATION
  Report Type: Spontaneous
  Country: CN (occurrence: CN)
  Receive Date: 20240709
  Receipt Date: 20240709
  Transmission Date: 20241017
  Serious: Yes (Hospitalization, Other)
  Sender: NOVARTIS
  Company Number: CN-002147023-NVSC2024CN140699

PATIENT
  Age: 34 Year
  Sex: Female
  Weight: 62 kg

DRUGS (1)
  1. COSENTYX [Suspect]
     Active Substance: SECUKINUMAB
     Indication: Psoriasis
     Dosage: 300 MG, QMO
     Route: 058
     Dates: start: 20220101, end: 20240504

REACTIONS (12)
  - Laryngopharyngitis [Not Recovered/Not Resolved]
  - Oropharyngeal pain [Not Recovered/Not Resolved]
  - Pyrexia [Not Recovered/Not Resolved]
  - Cough [Not Recovered/Not Resolved]
  - Productive cough [Not Recovered/Not Resolved]
  - Laryngeal mass [Unknown]
  - Epiglottitis [Unknown]
  - Lymphadenopathy [Unknown]
  - Lymphoid tissue hyperplasia [Unknown]
  - Lymphadenitis [Unknown]
  - Necrosis [Unknown]
  - Atypical lymphoid hyperplasia [Unknown]

NARRATIVE: CASE EVENT DATE: 20240101
